FAERS Safety Report 16583366 (Version 1)
Quarter: 2019Q3

REPORT INFORMATION
  Report Type: Spontaneous
  Country: US (occurrence: US)
  Receive Date: 20190604
  Receipt Date: 20190604
  Transmission Date: 20191004
  Serious: No
  Sender: FDA-Public Use
  Company Number: None

PATIENT
  Age: 59 Year
  Sex: Female

DRUGS (1)
  1. +DOXYCYLINE CAP 100MG [Suspect]
     Active Substance: DOXYCYCLINE
     Dates: start: 20190301

REACTIONS (3)
  - Hypoaesthesia [None]
  - Paraesthesia [None]
  - Photosensitivity reaction [None]

NARRATIVE: CASE EVENT DATE: 20190430
